FAERS Safety Report 12652688 (Version 2)
Quarter: 2016Q3

REPORT INFORMATION
  Report Type: Other
  Country: US (occurrence: US)
  Receive Date: 20160815
  Receipt Date: 20160902
  Transmission Date: 20161109
  Serious: Yes (Death, Hospitalization, Other)
  Sender: FDA-Public Use
  Company Number: US-SHIRE-US201608285

PATIENT
  Sex: Female
  Weight: 48.73 kg

DRUGS (1)
  1. GATTEX [Suspect]
     Active Substance: TEDUGLUTIDE\WATER
     Indication: SHORT-BOWEL SYNDROME
     Dosage: 0.21 MG, UNKNOWN
     Route: 058
     Dates: start: 20160610

REACTIONS (2)
  - Cardiac arrest [Fatal]
  - Device related infection [Unknown]

NARRATIVE: CASE EVENT DATE: 2016
